FAERS Safety Report 24447776 (Version 7)
Quarter: 2025Q3

REPORT INFORMATION
  Report Type: Spontaneous
  Country: US (occurrence: US)
  Receive Date: 20241016
  Receipt Date: 20250917
  Transmission Date: 20251021
  Serious: No
  Sender: SANOFI AVENTIS
  Company Number: US-SA-2024SA294635

PATIENT
  Age: 77 Year
  Sex: Female
  Weight: 71.2 kg

DRUGS (20)
  1. DUPIXENT [Suspect]
     Active Substance: DUPILUMAB
     Indication: Dermatitis atopic
     Route: 058
     Dates: start: 202410, end: 202410
  2. DUPIXENT [Suspect]
     Active Substance: DUPILUMAB
     Indication: Neurodermatitis
     Dosage: 300 MG, QOW
     Route: 058
     Dates: start: 2024
  3. AMLODIPINE [Concomitant]
     Active Substance: AMLODIPINE BESYLATE
  4. BETAMETHASONE [Concomitant]
     Active Substance: BETAMETHASONE
  5. BUPROPION [Concomitant]
     Active Substance: BUPROPION
  6. CARVEDILOL [Concomitant]
     Active Substance: CARVEDILOL
  7. CELECOXIB [Concomitant]
     Active Substance: CELECOXIB
  8. CIPROFLOXACIN HYDROCHLORIDE [Concomitant]
     Active Substance: CIPROFLOXACIN HYDROCHLORIDE
  9. DEXLANSOPRAZOLE [Concomitant]
     Active Substance: DEXLANSOPRAZOLE
  10. DIGOXIN [Concomitant]
     Active Substance: DIGOXIN
  11. DOXEPIN [Concomitant]
     Active Substance: DOXEPIN
  12. DULOXETINE [Concomitant]
     Active Substance: DULOXETINE
  13. HYDROXYCHLOROQUINE SULFATE [Concomitant]
     Active Substance: HYDROXYCHLOROQUINE SULFATE
  14. HYDROXYZINE HYDROCHLORIDE [Concomitant]
     Active Substance: HYDROXYZINE HYDROCHLORIDE
  15. LEFLUNOMIDE [Concomitant]
     Active Substance: LEFLUNOMIDE
  16. OLMESARTAN [Concomitant]
     Active Substance: OLMESARTAN
  17. PREGABALIN [Concomitant]
     Active Substance: PREGABALIN
  18. TRAMADOL HCL [Concomitant]
     Active Substance: TRAMADOL HYDROCHLORIDE
  19. TRIAMCINOLONE [Concomitant]
     Active Substance: TRIAMCINOLONE
  20. TRAMADOL [Concomitant]
     Active Substance: TRAMADOL

REACTIONS (14)
  - Skin lesion [Unknown]
  - Skin infection [Unknown]
  - Erythema [Unknown]
  - Pruritus [Not Recovered/Not Resolved]
  - Neurodermatitis [Recovered/Resolved]
  - Symptom recurrence [Recovered/Resolved]
  - Pruritus [Recovered/Resolved]
  - Therapeutic response shortened [Recovered/Resolved]
  - Dermatitis atopic [Unknown]
  - Rash erythematous [Not Recovered/Not Resolved]
  - Pruritus [Not Recovered/Not Resolved]
  - Skin burning sensation [Not Recovered/Not Resolved]
  - Condition aggravated [Not Recovered/Not Resolved]
  - Inappropriate schedule of product administration [Unknown]

NARRATIVE: CASE EVENT DATE: 20240101
